FAERS Safety Report 6894693-7 (Version None)
Quarter: 2010Q3

REPORT INFORMATION
  Report Type: 
  Country: None (occurrence: None)
  Receive Date: 20100730
  Receipt Date: 20100730
  Transmission Date: 20110219
  Serious: No
  Sender: FDA-Public Use
  Company Number: None

PATIENT

DRUGS (1)
  1. HUMATE-P [Suspect]

REACTIONS (1)
  - PHYSICAL PRODUCT LABEL ISSUE [None]
